FAERS Safety Report 10615763 (Version 1)
Quarter: 2014Q4

REPORT INFORMATION
  Report Type: Spontaneous
  Country: US (occurrence: None)
  Receive Date: 20141118
  Receipt Date: 20141118
  Transmission Date: 20150529
  Serious: Yes (Other)
  Sender: FDA-Public Use
  Company Number: None

PATIENT
  Age: 24 Year
  Sex: Female
  Weight: 46.72 kg

DRUGS (1)
  1. NICADAN [Suspect]
     Active Substance: DIETARY SUPPLEMENT
     Indication: ACNE
     Dosage: ONE PILL DAILY -- TAKEN BY MOUTH
     Route: 048

REACTIONS (2)
  - Nausea [None]
  - Glossodynia [None]

NARRATIVE: CASE EVENT DATE: 20141116
